FAERS Safety Report 4723805-6 (Version None)
Quarter: 2005Q3

REPORT INFORMATION
  Report Type: 
  Country: None (occurrence: None)
  Receive Date: 20050725
  Receipt Date: 20050713
  Transmission Date: 20060218
  Serious: Yes (Hospitalization)
  Sender: FDA-Public Use
  Company Number: PHBS2005BR10055

PATIENT
  Age: 56 Year
  Sex: Male

DRUGS (3)
  1. FORASEQ [Suspect]
     Indication: BRONCHITIS CHRONIC
     Dosage: 12/400 MCG/DAY
     Dates: start: 20040201
  2. CLORANA [Concomitant]
     Indication: HYPERTENSION
     Route: 048
  3. ENALAPRIL [Concomitant]
     Indication: HYPERTENSION
     Dosage: 2 TAB/DAY
     Route: 048

REACTIONS (5)
  - DYSPNOEA [None]
  - HAEMATEMESIS [None]
  - HAEMOPTYSIS [None]
  - PULMONARY HYPERTENSION [None]
  - RESPIRATORY TRACT INFECTION [None]
